FAERS Safety Report 20317860 (Version 1)
Quarter: 2022Q1

REPORT INFORMATION
  Report Type: Spontaneous
  Country: CN (occurrence: CN)
  Receive Date: 20220110
  Receipt Date: 20220110
  Transmission Date: 20220423
  Serious: Yes (Other)
  Sender: FDA-Public Use
  Company Number: CN-PFIZER INC-202200001149

PATIENT
  Age: 35 Year
  Sex: Male

DRUGS (3)
  1. CYTARABINE [Suspect]
     Active Substance: CYTARABINE
     Indication: Neoplasm malignant
     Dosage: ON DAYS 1, 3, AND 5, 6 TIMES/5 DAYS
     Route: 041
     Dates: start: 20211224, end: 20211228
  2. FLUMATINIB [Concomitant]
     Active Substance: FLUMATINIB
     Indication: Neoplasm malignant
     Dosage: UNK
     Dates: start: 20211224
  3. SODIUM CHLORIDE [Concomitant]
     Active Substance: SODIUM CHLORIDE
     Indication: Vehicle solution use
     Dosage: 250 ML, 6 TIMES/5 DAYS
     Route: 041
     Dates: start: 20211224, end: 20211228

REACTIONS (4)
  - Flushing [Unknown]
  - Ocular hyperaemia [Unknown]
  - Hyperaemia [Unknown]
  - Conjunctival hyperaemia [Unknown]

NARRATIVE: CASE EVENT DATE: 20211225
